FAERS Safety Report 9663106 (Version 1)
Quarter: 2013Q4

REPORT INFORMATION
  Report Type: Report from Study
  Country: FR (occurrence: FR)
  Receive Date: 20131101
  Receipt Date: 20131101
  Transmission Date: 20140711
  Serious: Yes (Other)
  Sender: FDA-Public Use
  Company Number: PHHY2013FR123037

PATIENT
  Age: 65 Year
  Sex: Female

DRUGS (4)
  1. ACLASTA/ZOLEDRONATE [Suspect]
     Indication: OSTEOPOROSIS
     Dosage: UNK
     Route: 042
     Dates: start: 201204
  2. ACLASTA/ZOLEDRONATE [Suspect]
     Dosage: UNK
     Route: 042
     Dates: start: 201304
  3. HYTACAND [Concomitant]
     Dosage: UNK
     Dates: start: 1992
  4. EZETIMIBE [Concomitant]
     Dosage: UNK
     Dates: start: 2007

REACTIONS (1)
  - Spinal fracture [Unknown]
